FAERS Safety Report 23738761 (Version 1)
Quarter: 2024Q2

REPORT INFORMATION
  Report Type: Spontaneous
  Country: BR (occurrence: BR)
  Receive Date: 20240413
  Receipt Date: 20240413
  Transmission Date: 20240716
  Serious: Yes (Life-Threatening, Other)
  Sender: FDA-Public Use
  Company Number: BR-CELLTRION INC.-2024BR008420

PATIENT

DRUGS (3)
  1. HERZUMA [Suspect]
     Active Substance: TRASTUZUMAB-PKRB
     Indication: Breast cancer metastatic
     Dosage: 354MG, CYCLE 6
     Route: 042
     Dates: start: 20240404, end: 20240404
  2. PERTUZUMAB [Suspect]
     Active Substance: PERTUZUMAB
     Indication: Breast cancer metastatic
     Dosage: UNK
     Dates: start: 20240404, end: 20240404
  3. DOCETAXEL [Concomitant]
     Active Substance: DOCETAXEL\DOCETAXEL ANHYDROUS
     Indication: Breast cancer metastatic
     Dosage: UNK
     Dates: start: 20240404, end: 20240404

REACTIONS (7)
  - Cardio-respiratory arrest [Recovering/Resolving]
  - Dyspnoea [Recovering/Resolving]
  - Muscular weakness [Recovering/Resolving]
  - Muscular weakness [Recovering/Resolving]
  - Intentional product use issue [Unknown]
  - Product use issue [Unknown]
  - Product quality issue [Unknown]

NARRATIVE: CASE EVENT DATE: 20240404
